FAERS Safety Report 11203805 (Version 2)
Quarter: 2015Q3

REPORT INFORMATION
  Report Type: Spontaneous
  Country: US (occurrence: US)
  Receive Date: 20150619
  Receipt Date: 20150717
  Transmission Date: 20151125
  Serious: No
  Sender: FDA-Public Use
  Company Number: US-GILEAD-2015-0159286

PATIENT
  Sex: Male

DRUGS (2)
  1. RITUXAN [Concomitant]
     Active Substance: RITUXIMAB
  2. ZYDELIG [Suspect]
     Active Substance: IDELALISIB
     Indication: PRODUCT USED FOR UNKNOWN INDICATION
     Dosage: UNK
     Dates: start: 201503

REACTIONS (1)
  - White blood cell count increased [Unknown]
